FAERS Safety Report 6328646-4 (Version None)
Quarter: 2009Q3

REPORT INFORMATION
  Report Type: 
  Country: None (occurrence: None)
  Receive Date: 20090825
  Receipt Date: 20090825
  Transmission Date: 20100115
  Serious: No
  Sender: FDA-Public Use
  Company Number: None

PATIENT
  Sex: Female
  Weight: 50.8029 kg

DRUGS (2)
  1. ALENDRONATE SODIUM [Suspect]
     Indication: OSTEOPOROSIS
     Dosage: ONCE PO Q WKLY PO
     Route: 048
     Dates: start: 20090810
  2. ALENDRONATE SODIUM [Suspect]
     Indication: OSTEOPOROSIS
     Dosage: ONCE PO Q WKLY PO
     Route: 048
     Dates: start: 20090817

REACTIONS (6)
  - DIZZINESS [None]
  - DYSPEPSIA [None]
  - DYSPNOEA [None]
  - FLUSHING [None]
  - NAUSEA [None]
  - VOMITING [None]
